FAERS Safety Report 17023621 (Version 1)
Quarter: 2019Q4

REPORT INFORMATION
  Report Type: Spontaneous
  Country: IN (occurrence: IN)
  Receive Date: 20191113
  Receipt Date: 20191113
  Transmission Date: 20200122
  Serious: Yes (Other)
  Sender: FDA-Public Use
  Company Number: IN-INGENUS PHARMACEUTICALS, LLC-2019INF000368

PATIENT
  Age: 63 Year
  Sex: Female

DRUGS (2)
  1. CARBOPLATIN. [Suspect]
     Active Substance: CARBOPLATIN
     Indication: LUNG ADENOCARCINOMA
     Dosage: UNK, TWO CYCLES OF CHEMOTHERAPY WITHIN THREE MONTHS
     Route: 065
  2. PEMETREXED. [Suspect]
     Active Substance: PEMETREXED
     Indication: LUNG ADENOCARCINOMA
     Dosage: UNK, TWO CYCLES OF CHEMOTHERAPY WITHIN THREE MONTHS
     Route: 065

REACTIONS (4)
  - Febrile neutropenia [Unknown]
  - Drug ineffective [Unknown]
  - Pancytopenia [Unknown]
  - Pulmonary embolism [Unknown]
